FAERS Safety Report 7127632-4 (Version None)
Quarter: 2010Q4

REPORT INFORMATION
  Report Type: 
  Country: None (occurrence: None)
  Receive Date: 20101130
  Receipt Date: 20101118
  Transmission Date: 20110411
  Serious: Yes (Hospitalization)
  Sender: FDA-Public Use
  Company Number: US-BIOGENIDEC-2010BI027437

PATIENT
  Age: 49 Year
  Sex: Male
  Weight: 102 kg

DRUGS (5)
  1. TYSABRI [Suspect]
     Indication: MULTIPLE SCLEROSIS
     Route: 042
     Dates: start: 20071227
  2. AMPYRA [Concomitant]
     Indication: GAIT DISTURBANCE
     Dates: start: 20100715
  3. AMPYRA [Concomitant]
     Indication: FATIGUE
     Dates: start: 20100715
  4. NEURONTIN [Concomitant]
     Indication: NEURALGIA
     Dates: start: 20031201
  5. BACLOFEN [Concomitant]
     Indication: MUSCLE RIGIDITY
     Dates: start: 20031201

REACTIONS (16)
  - ABDOMINAL PAIN [None]
  - CAMPYLOBACTER INFECTION [None]
  - CARDIAC ARREST [None]
  - CHOLELITHIASIS OBSTRUCTIVE [None]
  - COLITIS [None]
  - COLONIC POLYP [None]
  - CONSTIPATION [None]
  - DIVERTICULUM [None]
  - FLANK PAIN [None]
  - GALLBLADDER DISORDER [None]
  - MOBILITY DECREASED [None]
  - MULTIPLE SCLEROSIS RELAPSE [None]
  - NAUSEA [None]
  - NEPHROLITHIASIS [None]
  - NEURALGIA [None]
  - VOMITING [None]
